FAERS Safety Report 4987986-1 (Version None)
Quarter: 2006Q2

REPORT INFORMATION
  Report Type: 
  Country: None (occurrence: None)
  Receive Date: 20060424
  Receipt Date: 20060413
  Transmission Date: 20061013
  Serious: Yes (Death, Hospitalization)
  Sender: FDA-Public Use
  Company Number: 2006-BP-04248RO

PATIENT
  Age: 58 Year
  Sex: Male

DRUGS (3)
  1. METHOTREXATE [Suspect]
     Indication: PSORIATIC ARTHROPATHY
     Dosage: 15 MG/WEEK
  2. METHYLPREDNISOLONE [Concomitant]
  3. FOLIC ACID [Concomitant]

REACTIONS (13)
  - ALVEOLITIS [None]
  - BRONCHIECTASIS [None]
  - CANDIDIASIS [None]
  - DIFFUSE ALVEOLAR DAMAGE [None]
  - HAEMOGLOBIN DECREASED [None]
  - INTERSTITIAL LUNG DISEASE [None]
  - LUNG CONSOLIDATION [None]
  - NODAL ARRHYTHMIA [None]
  - ORAL CANDIDIASIS [None]
  - PNEUMONITIS [None]
  - PSORIASIS [None]
  - PULMONARY FIBROSIS [None]
  - RESPIRATORY FAILURE [None]
